FAERS Safety Report 11460633 (Version 8)
Quarter: 2016Q2

REPORT INFORMATION
  Report Type: Report from Study
  Country: BR (occurrence: BR)
  Receive Date: 20150904
  Receipt Date: 20160513
  Transmission Date: 20160815
  Serious: Yes (Hospitalization, Other)
  Sender: FDA-Public Use
  Company Number: PHHY2015BR089962

PATIENT
  Age: 72 Year
  Sex: Male
  Weight: 69 kg

DRUGS (8)
  1. DIVELOL [Concomitant]
     Indication: CARDIAC DISORDER
     Dosage: 2 DF, QD
     Route: 048
     Dates: start: 201507
  2. LOSARTAN POTASSIUM. [Concomitant]
     Active Substance: LOSARTAN POTASSIUM
     Indication: BLOOD PRESSURE INCREASED
     Route: 065
  3. LASIX [Concomitant]
     Active Substance: FUROSEMIDE
     Indication: BLOOD PRESSURE INCREASED
     Route: 065
  4. ALDACTONE [Concomitant]
     Active Substance: SPIRONOLACTONE
     Indication: CARDIAC DISORDER
     Dosage: 1 DF, QD
     Route: 048
     Dates: start: 201507
  5. SANDOSTATIN LAR DEPOT [Suspect]
     Active Substance: OCTREOTIDE ACETATE
     Indication: NEUROENDOCRINE TUMOUR
     Dosage: 30 MG, QMO, ONCE A MONTH
     Route: 030
     Dates: start: 20130825
  6. SANDOSTATIN LAR DEPOT [Suspect]
     Active Substance: OCTREOTIDE ACETATE
     Dosage: 60 MG, QMO, (2 AMPOULES OF 30 MG MONTHLY)
     Route: 030
     Dates: start: 2015
  7. ALLOPURINOL. [Concomitant]
     Active Substance: ALLOPURINOL
     Indication: BLOOD PRESSURE INCREASED
     Route: 065
  8. LOSARTAN. [Concomitant]
     Active Substance: LOSARTAN
     Indication: CARDIAC DISORDER
     Dosage: 2 DF, QD
     Route: 048

REACTIONS (27)
  - Dysphonia [Recovered/Resolved]
  - Diarrhoea [Not Recovered/Not Resolved]
  - Fatigue [Not Recovered/Not Resolved]
  - Asthenia [Unknown]
  - Thyroid disorder [Unknown]
  - Pneumonia [Recovered/Resolved]
  - Blood pressure decreased [Unknown]
  - Emphysema [Unknown]
  - Blood potassium increased [Unknown]
  - Memory impairment [Recovering/Resolving]
  - Weight decreased [Unknown]
  - Weight gain poor [Unknown]
  - Somnolence [Unknown]
  - Injection site mass [Unknown]
  - Injection site injury [Unknown]
  - Fibrosis [Unknown]
  - Renal disorder [Recovering/Resolving]
  - Blood creatinine increased [Recovering/Resolving]
  - Blood testosterone decreased [Unknown]
  - Injection site pain [Unknown]
  - Intestinal perforation [Unknown]
  - Aphthous ulcer [Not Recovered/Not Resolved]
  - Needle issue [Unknown]
  - Wrong technique in product usage process [Unknown]
  - No therapeutic response [Unknown]
  - Metastases to large intestine [Unknown]
  - Wheezing [Recovered/Resolved]

NARRATIVE: CASE EVENT DATE: 201507
